FAERS Safety Report 5625528-8 (Version None)
Quarter: 2008Q1

REPORT INFORMATION
  Report Type: 
  Country: None (occurrence: None)
  Receive Date: 20080211
  Receipt Date: 20080211
  Transmission Date: 20080703
  Serious: Yes (Other)
  Sender: FDA-Public Use
  Company Number: None

PATIENT
  Sex: Female
  Weight: 48.9885 kg

DRUGS (8)
  1. FOSAMAX PLUS D [Suspect]
     Indication: OSTEOPOROSIS
     Dosage: 70/2800  WEEKLY  PO
     Route: 048
     Dates: start: 20060109, end: 20080109
  2. FOSAMAX [Suspect]
     Indication: OSTEOPOROSIS
     Dosage: 1 TABLET  WEEKLY  PO
     Route: 048
     Dates: start: 19980310, end: 20051218
  3. LIPITOR [Concomitant]
  4. ZOVIRAX [Concomitant]
  5. ATENOLOL [Concomitant]
  6. DYAZIDE [Concomitant]
  7. EVISTA [Concomitant]
  8. ZYRTEC [Concomitant]

REACTIONS (3)
  - ARTHRALGIA [None]
  - MUSCLE SPASMS [None]
  - MYALGIA [None]
